FAERS Safety Report 11668952 (Version 1)
Quarter: 2015Q4

REPORT INFORMATION
  Report Type: Spontaneous
  Country: US (occurrence: US)
  Receive Date: 20151027
  Receipt Date: 20151027
  Transmission Date: 20160304
  Serious: No
  Sender: FDA-Public Use
  Company Number: US-ELI_LILLY_AND_COMPANY-US201004000442

PATIENT
  Age: 60 Year
  Sex: Female

DRUGS (1)
  1. FORTEO [Suspect]
     Active Substance: TERIPARATIDE
     Indication: OSTEOPOROSIS
     Dosage: 20 UG, DAILY (1/D)
     Dates: start: 20100322

REACTIONS (10)
  - Tremor [Unknown]
  - Stress [Unknown]
  - Feeling abnormal [Unknown]
  - Fatigue [Unknown]
  - Emotional disorder [Unknown]
  - Drug dose omission [Recovered/Resolved]
  - Erythema [Unknown]
  - Somnolence [Unknown]
  - Nervousness [Unknown]
  - Gait disturbance [Unknown]

NARRATIVE: CASE EVENT DATE: 201003
